FAERS Safety Report 8477284-6 (Version None)
Quarter: 2012Q2

REPORT INFORMATION
  Report Type: 
  Country: None (occurrence: None)
  Receive Date: 20120629
  Receipt Date: 20120619
  Transmission Date: 20120825
  Serious: Yes (Life-Threatening, Hospitalization)
  Sender: FDA-Public Use
  Company Number: FR-JNJFOC-20120610441

PATIENT
  Age: 76 Year
  Sex: Male

DRUGS (6)
  1. SYMBICORT [Concomitant]
     Route: 065
  2. REMICADE [Suspect]
     Indication: PSORIATIC ARTHROPATHY
     Route: 042
     Dates: start: 20020401
  3. PREDNISONE TAB [Suspect]
     Indication: PSORIATIC ARTHROPATHY
     Route: 048
  4. NEXIUM [Concomitant]
     Route: 065
  5. KARDEGIC [Concomitant]
     Route: 065
  6. LEVOTHYROXINE SODIUM [Concomitant]
     Route: 065

REACTIONS (3)
  - SEPTIC SHOCK [None]
  - BRONCHITIS [None]
  - RENAL FAILURE ACUTE [None]
